FAERS Safety Report 9645939 (Version 3)
Quarter: 2013Q4

REPORT INFORMATION
  Report Type: Spontaneous
  Country: US (occurrence: US)
  Receive Date: 20131025
  Receipt Date: 20131111
  Transmission Date: 20140711
  Serious: Yes (Death, Hospitalization, Congenital Anomaly, Other)
  Sender: FDA-Public Use
  Company Number: US-BAYER-2013-128572

PATIENT
  Age: 0 Year
  Sex: Female

DRUGS (2)
  1. MIRENA [Suspect]
     Dosage: UNK UNK,
     Route: 064
  2. MIRENA [Suspect]
     Dosage: UNK UNK,
     Route: 064

REACTIONS (7)
  - Premature baby [None]
  - Congenital anomaly [None]
  - Skeletal dysplasia [None]
  - Heart disease congenital [None]
  - Hydronephrosis [None]
  - Cerebral atrophy [None]
  - Death [Fatal]
